FAERS Safety Report 5506851-4 (Version None)
Quarter: 2007Q4

REPORT INFORMATION
  Report Type: 
  Country: None (occurrence: None)
  Receive Date: 20071105
  Receipt Date: 20071030
  Transmission Date: 20080405
  Serious: Yes (Death, Hospitalization)
  Sender: FDA-Public Use
  Company Number: NL-SANOFI-SYNTHELABO-A01200712289

PATIENT
  Age: 64 Year
  Sex: Male

DRUGS (3)
  1. XELODA [Suspect]
     Indication: COLON CANCER
     Route: 048
  2. ELOXATIN [Suspect]
     Indication: COLON CANCER
     Route: 041
  3. ELOXATIN [Suspect]
     Route: 041

REACTIONS (3)
  - ARTERIOSPASM CORONARY [None]
  - DEATH [None]
  - RENAL FAILURE [None]
